FAERS Safety Report 4432457-4 (Version None)
Quarter: 2004Q3

REPORT INFORMATION
  Report Type: 
  Country: None (occurrence: None)
  Receive Date: 20040820
  Receipt Date: 20040804
  Transmission Date: 20050211
  Serious: Yes (Disabling)
  Sender: FDA-Public Use
  Company Number: DSA_80974_2004

PATIENT
  Age: 67 Year
  Sex: Male
  Weight: 109.7705 kg

DRUGS (6)
  1. XYREM [Suspect]
     Indication: CATAPLEXY
     Dosage: 8 G NIGHTLY PO
     Route: 048
     Dates: start: 20040504, end: 20040607
  2. LOPRESSOR [Concomitant]
  3. PRINZIDE [Concomitant]
  4. PROVIGIL [Concomitant]
  5. CARDIZEM [Concomitant]
  6. LISINOPRIL [Concomitant]

REACTIONS (2)
  - CATAPLEXY [None]
  - CONDITION AGGRAVATED [None]
